FAERS Safety Report 25219228 (Version 1)
Quarter: 2025Q2

REPORT INFORMATION
  Report Type: Spontaneous
  Country: ES (occurrence: ES)
  Receive Date: 20250421
  Receipt Date: 20250421
  Transmission Date: 20250716
  Serious: Yes (Hospitalization)
  Sender: TEVA
  Company Number: None

PATIENT
  Age: 92 Year
  Sex: Male

DRUGS (2)
  1. ENALAPRIL [Suspect]
     Active Substance: ENALAPRIL
     Indication: Hypertension
     Dosage: ENALAPRIL (2142A)
     Route: 048
     Dates: start: 20200120, end: 20250323
  2. ELIGARD [Concomitant]
     Active Substance: LEUPROLIDE ACETATE
     Indication: Prostate cancer
     Dosage: ELIGARD SEMESTRAL POWDER AND SOLVENT FOR INJECTABLE SOLUTION, 1 PRE-FILLED SYRINGE + 1 PRE-FILLED...
     Route: 058
     Dates: start: 20190321

REACTIONS (1)
  - Hyponatraemia [Recovering/Resolving]

NARRATIVE: CASE EVENT DATE: 20250323
